APPROVED DRUG PRODUCT: NITROGLYCERIN
Active Ingredient: NITROGLYCERIN
Strength: 0.1MG/HR
Dosage Form/Route: FILM, EXTENDED RELEASE;TRANSDERMAL
Application: A074559 | Product #004 | TE Code: AB2
Applicant: MYLAN TECHNOLOGIES INC
Approved: Feb 6, 1998 | RLD: No | RS: No | Type: RX